FAERS Safety Report 21962539 (Version 1)
Quarter: 2023Q1

REPORT INFORMATION
  Report Type: Spontaneous
  Country: US (occurrence: US)
  Receive Date: 20230207
  Receipt Date: 20230207
  Transmission Date: 20230417
  Serious: No
  Sender: FDA-Public Use
  Company Number: US-LEO Pharma-349000

PATIENT
  Age: 50 Year
  Sex: Male

DRUGS (1)
  1. ADBRY [Suspect]
     Active Substance: TRALOKINUMAB-LDRM
     Indication: Product used for unknown indication
     Route: 058

REACTIONS (1)
  - Sensation of foreign body [Not Recovered/Not Resolved]

NARRATIVE: CASE EVENT DATE: 20230118
